FAERS Safety Report 9369373 (Version 2)
Quarter: 2013Q3

REPORT INFORMATION
  Report Type: Spontaneous
  Country: US (occurrence: US)
  Receive Date: 20130626
  Receipt Date: 20130807
  Transmission Date: 20140515
  Serious: Yes (Other)
  Sender: FDA-Public Use
  Company Number: US-ROXANE LABORATORIES, INC.-2013-RO-01011RO

PATIENT
  Sex: Female

DRUGS (2)
  1. MORPHINE [Suspect]
     Indication: PAIN
     Route: 048
  2. MORPHINE [Suspect]
     Indication: DYSPNOEA

REACTIONS (3)
  - Grimacing [Unknown]
  - Pain [Unknown]
  - Product quality issue [Unknown]
